FAERS Safety Report 26208248 (Version 1)
Quarter: 2025Q4

REPORT INFORMATION
  Report Type: Spontaneous
  Country: US (occurrence: None)
  Receive Date: 20251226
  Receipt Date: 20251226
  Transmission Date: 20260118
  Serious: Yes (Disabling)
  Sender: FDA-CTU
  Company Number: None

PATIENT
  Age: 64 Year
  Sex: Female
  Weight: 97.65 kg

DRUGS (15)
  1. MOUNJARO [Suspect]
     Active Substance: TIRZEPATIDE
     Indication: Diabetes mellitus
  2. MOUNJARO [Suspect]
     Active Substance: TIRZEPATIDE
     Indication: Weight decreased
  3. DEVICE [Concomitant]
     Active Substance: DEVICE
  4. reveal device [Concomitant]
  5. LEVOTHYROXINE [Concomitant]
     Active Substance: LEVOTHYROXINE
  6. LOSARTAN [Concomitant]
     Active Substance: LOSARTAN
  7. HYDROCHLOROTHIAZIDE [Concomitant]
     Active Substance: HYDROCHLOROTHIAZIDE
  8. METOPROLOL [Concomitant]
     Active Substance: METOPROLOL
  9. ATORVASTATIN [Concomitant]
     Active Substance: ATORVASTATIN
  10. PLAVIX [Concomitant]
     Active Substance: CLOPIDOGREL BISULFATE
  11. DULOXETINE [Concomitant]
     Active Substance: DULOXETINE
  12. GABAPENTIN [Concomitant]
     Active Substance: GABAPENTIN
  13. VITAMIN B COMPLEX [Concomitant]
     Active Substance: CYANOCOBALAMIN\DEXPANTHENOL\NIACINAMIDE\PYRIDOXINE HYDROCHLORIDE\RIBOFLAVIN 5^-PHOSPHATE SODIUM\THIA
  14. VITAMIN D [Concomitant]
     Active Substance: VITAMIN D NOS
  15. rare tylenol [Concomitant]

REACTIONS (5)
  - Dry mouth [None]
  - Oral pain [None]
  - Glossodynia [None]
  - Dysphagia [None]
  - Mass [None]

NARRATIVE: CASE EVENT DATE: 20250115
